FAERS Safety Report 13770515 (Version 1)
Quarter: 2017Q3

REPORT INFORMATION
  Report Type: Spontaneous
  Country: US (occurrence: US)
  Receive Date: 20170719
  Receipt Date: 20170719
  Transmission Date: 20171127
  Serious: Yes (Other)
  Sender: FDA-Public Use
  Company Number: None

PATIENT
  Age: 60 Year
  Sex: Female
  Weight: 67.5 kg

DRUGS (16)
  1. YEAST FIGHTER [Concomitant]
  2. VITAMIN D3 [Concomitant]
     Active Substance: CHOLECALCIFEROL
  3. ESTROGEN [Concomitant]
     Active Substance: ESTROGENS
  4. ORTHO METHYL B COMPLEX [Concomitant]
  5. LIPITROL [Concomitant]
  6. NATURTHROID [Concomitant]
  7. PREGNOLONE DHEA [Concomitant]
  8. XYREM [Suspect]
     Active Substance: SODIUM OXYBATE
     Indication: NARCOLEPSY
     Dosage: OTHER STRENGTH:MG;QUANTITY:4.5 GM;OTHER FREQUENCY:TWICE/NIGHT, 4HRS;?
     Route: 048
     Dates: start: 20170221, end: 20170719
  9. NEXIUM [Concomitant]
     Active Substance: ESOMEPRAZOLE MAGNESIUM
  10. ZYFLAMEND [Concomitant]
  11. ORTHOBIOTICS [Concomitant]
  12. IMMUNOTHERAPY ZINC [Concomitant]
  13. TWO PER DAY VITAMINS BY LIFE EXTENSION [Concomitant]
  14. AMBIEN CR [Concomitant]
     Active Substance: ZOLPIDEM TARTRATE
  15. CRESTOR [Concomitant]
     Active Substance: ROSUVASTATIN CALCIUM
  16. BUPROPION. [Concomitant]
     Active Substance: BUPROPION

REACTIONS (5)
  - Tinnitus [None]
  - Deafness [None]
  - Middle ear effusion [None]
  - Drug ineffective [None]
  - Ear discomfort [None]

NARRATIVE: CASE EVENT DATE: 20170515
